FAERS Safety Report 4427750-5 (Version None)
Quarter: 2004Q3

REPORT INFORMATION
  Report Type: 
  Country: None (occurrence: None)
  Receive Date: 20040817
  Receipt Date: 20040807
  Transmission Date: 20050211
  Serious: Yes (Hospitalization)
  Sender: FDA-Public Use
  Company Number: GB-GLAXOSMITHKLINE-B0341831A

PATIENT
  Age: 60 Year
  Sex: Female
  Weight: 80 kg

DRUGS (2)
  1. AUGMENTIN '125' [Suspect]
     Dosage: 1.2MG UNKNOWN
     Route: 042
     Dates: start: 20040316
  2. ANAESTHETIC [Concomitant]

REACTIONS (3)
  - BRONCHOSPASM [None]
  - HYPOTENSION [None]
  - OEDEMA [None]
